FAERS Safety Report 6518045-4 (Version None)
Quarter: 2009Q4

REPORT INFORMATION
  Report Type: 
  Country: None (occurrence: None)
  Receive Date: 20091223
  Receipt Date: 20091223
  Transmission Date: 20100525
  Serious: Yes (Hospitalization)
  Sender: FDA-Public Use
  Company Number: None

PATIENT
  Age: 57 Year
  Sex: Female
  Weight: 74.8 kg

DRUGS (2)
  1. IMIPENEM AND CILASTATIN SODIUM [Suspect]
     Indication: URINARY TRACT INFECTION
     Dosage: 500 MG TID IV
     Route: 042
     Dates: start: 20091019, end: 20091023
  2. TOBRAMYCIN SULFATE IN SODIUM CHLORIDE 0.9% [Suspect]
     Indication: URINARY TRACT INFECTION
     Dosage: 80 MG BID IV
     Route: 042
     Dates: start: 20091023, end: 20091025

REACTIONS (4)
  - DYSPNOEA [None]
  - RASH [None]
  - SWELLING FACE [None]
  - TACHYPNOEA [None]
